FAERS Safety Report 9070969 (Version 3)
Quarter: 2013Q3

REPORT INFORMATION
  Report Type: Report from Study
  Country: JP (occurrence: JP)
  Receive Date: 20130129
  Receipt Date: 20130905
  Transmission Date: 20140515
  Serious: Yes (Hospitalization)
  Sender: FDA-Public Use
  Company Number: JP-GLAXOSMITHKLINE-B0860365A

PATIENT
  Age: 80 Year
  Sex: Male
  Weight: 56 kg

DRUGS (14)
  1. LAMICTAL [Suspect]
     Indication: COMPLEX PARTIAL SEIZURES
     Dosage: 50MG PER DAY
     Route: 048
     Dates: start: 20110905, end: 20110913
  2. LAMICTAL [Suspect]
     Indication: COMPLEX PARTIAL SEIZURES
     Dosage: 50MG TWICE PER DAY
     Route: 048
     Dates: start: 20110914, end: 20110920
  3. LAMICTAL [Suspect]
     Indication: COMPLEX PARTIAL SEIZURES
     Dosage: 100MG TWICE PER DAY
     Route: 048
     Dates: start: 20110921, end: 20110922
  4. TEGRETOL [Suspect]
     Indication: COMPLEX PARTIAL SEIZURES
     Route: 048
     Dates: start: 20080705, end: 20080708
  5. TEGRETOL [Suspect]
     Indication: COMPLEX PARTIAL SEIZURES
     Route: 048
     Dates: start: 20080709
  6. ALEVIATIN [Concomitant]
     Indication: COMPLEX PARTIAL SEIZURES
     Route: 048
     Dates: start: 20080703, end: 20080704
  7. SELENICA-R [Concomitant]
     Indication: COMPLEX PARTIAL SEIZURES
     Route: 048
     Dates: start: 20080709, end: 20080714
  8. SELENICA-R [Concomitant]
     Indication: COMPLEX PARTIAL SEIZURES
     Route: 048
     Dates: start: 20080715, end: 20080721
  9. SELENICA-R [Concomitant]
     Indication: COMPLEX PARTIAL SEIZURES
     Route: 048
     Dates: start: 20080722, end: 20080724
  10. TAKEPRON [Concomitant]
     Indication: PROPHYLAXIS
     Route: 048
  11. VESICARE [Concomitant]
     Route: 048
  12. BLOPRESS [Concomitant]
     Route: 048
  13. MYSLEE [Concomitant]
     Route: 048
  14. DEPAS [Concomitant]
     Route: 048

REACTIONS (2)
  - Inappropriate antidiuretic hormone secretion [Recovered/Resolved]
  - Hyponatraemia [Recovered/Resolved]
